FAERS Safety Report 7012680-5 (Version None)
Quarter: 2010Q3

REPORT INFORMATION
  Report Type: 
  Country: None (occurrence: None)
  Receive Date: 20100922
  Receipt Date: 20100910
  Transmission Date: 20110219
  Serious: Yes (Hospitalization)
  Sender: FDA-Public Use
  Company Number: UTC-001432

PATIENT
  Age: 35 Year
  Sex: Female
  Weight: 97.2 kg

DRUGS (8)
  1. REMODULIN [Suspect]
     Dosage: 100.8 UG/KG (0.07 UG/KG, 1 IN 1 MIN), SUBCUTANEOUS
     Route: 058
     Dates: start: 20100610
  2. PAXIL [Concomitant]
  3. LASIX [Concomitant]
  4. REVATIO [Concomitant]
  5. POTASSIUM CHLORIDE [Concomitant]
  6. DIGOXIN [Concomitant]
  7. MORPHINE [Concomitant]
  8. OXYCODONE HCL [Concomitant]

REACTIONS (2)
  - INFUSION SITE PUSTULE [None]
  - PURULENCE [None]
